FAERS Safety Report 5139151-5 (Version None)
Quarter: 2006Q4

REPORT INFORMATION
  Report Type: 
  Country: None (occurrence: None)
  Receive Date: 20061030
  Receipt Date: 20060629
  Transmission Date: 20070319
  Serious: No
  Sender: FDA-Public Use
  Company Number: US-GLAXOSMITHKLINE-A0610791A

PATIENT
  Sex: Male

DRUGS (5)
  1. ADVAIR HFA [Suspect]
     Indication: CHRONIC OBSTRUCTIVE PULMONARY DISEASE
     Dosage: 1PUFF TWICE PER DAY
     Route: 055
     Dates: start: 20050901, end: 20060201
  2. DIOVAN [Concomitant]
  3. ULTRAM [Concomitant]
  4. DOSTINEX [Concomitant]
  5. ANDROGEL [Concomitant]

REACTIONS (1)
  - DYSPHONIA [None]
